FAERS Safety Report 17711048 (Version 2)
Quarter: 2020Q2

REPORT INFORMATION
  Report Type: Spontaneous
  Country: US (occurrence: US)
  Receive Date: 20200427
  Receipt Date: 20200508
  Transmission Date: 20200714
  Serious: Yes (Other)
  Sender: FDA-Public Use
  Company Number: US-PFIZER INC-2020117632

PATIENT
  Age: 74 Year
  Sex: Female
  Weight: 56.69 kg

DRUGS (2)
  1. PREMARIN [Suspect]
     Active Substance: ESTROGENS, CONJUGATED
     Indication: URETHRAL CARBUNCLE
     Dosage: 1 G,  DAILY FOR 2 WEEKS, THEN 3 TIMES PER WEEK
  2. PREMARIN [Suspect]
     Active Substance: ESTROGENS, CONJUGATED
     Indication: OESTROGEN DEFICIENCY

REACTIONS (5)
  - Haemorrhage [Unknown]
  - Hypoacusis [Unknown]
  - Product use in unapproved indication [Unknown]
  - Off label use [Unknown]
  - Product use issue [Unknown]
